FAERS Safety Report 18228143 (Version 2)
Quarter: 2020Q3

REPORT INFORMATION
  Report Type: Report from Study
  Country: KR (occurrence: KR)
  Receive Date: 20200903
  Receipt Date: 20200904
  Transmission Date: 20201103
  Serious: Yes (Hospitalization, Other)
  Sender: FDA-Public Use
  Company Number: KR-009507513-1910KOR015003

PATIENT
  Sex: Male

DRUGS (51)
  1. INLYTA [Concomitant]
     Active Substance: AXITINIB
     Dosage: DOSE: 2, TIMES:1
     Route: 048
     Dates: start: 20191015, end: 20191015
  2. COMBIFLEX [Concomitant]
     Dosage: QUANTITY 1, DAYS 15, , STRENGTH ALSO REPORTED AS 1100ML
     Dates: start: 20190930, end: 20191014
  3. MORPHINE SULFATE. [Concomitant]
     Active Substance: MORPHINE SULFATE
     Dosage: QUANTITY 22, DAYS 1
     Dates: start: 20191014, end: 20191014
  4. MAGNESIUM SULFATE. [Concomitant]
     Active Substance: MAGNESIUM SULFATE
     Dosage: QUANTITY 1, DAYS 1
     Dates: start: 20191008, end: 20191008
  5. PEMBROLIZUMAB. [Suspect]
     Active Substance: PEMBROLIZUMAB
     Dosage: UNK
     Dates: start: 20200425, end: 20200425
  6. PEMBROLIZUMAB. [Suspect]
     Active Substance: PEMBROLIZUMAB
     Dosage: QUANTITY 2, DAYS 1
     Dates: start: 20200606, end: 20200606
  7. PEMBROLIZUMAB. [Suspect]
     Active Substance: PEMBROLIZUMAB
     Dosage: QUANTITY 2, DAYS 1
     Dates: start: 20200627, end: 20200627
  8. LIDOCAINE HYDROCHLORIDE JEIL [Concomitant]
     Dosage: DOSE:1, TIMES:1
     Dates: start: 20191015, end: 20191015
  9. ULTRAVIST [Concomitant]
     Active Substance: IOPROMIDE
     Dosage: DOSE:1, TIMES:1
     Dates: start: 20191015, end: 20191015
  10. SODIUM CHLORIDE. [Concomitant]
     Active Substance: SODIUM CHLORIDE
     Dosage: DOSE:1, TIMES:1
     Dates: start: 20191015, end: 20191015
  11. MORPHINE SULFATE. [Concomitant]
     Active Substance: MORPHINE SULFATE
     Dosage: QUANTITY 2, DAYS 1
     Dates: start: 20191008, end: 20191008
  12. BROPIUM [Concomitant]
     Dosage: QUANTITY 3, DAYS 1
     Dates: start: 20191010, end: 20191010
  13. PEMBROLIZUMAB. [Suspect]
     Active Substance: PEMBROLIZUMAB
     Dosage: QUANTITY 2, DAYS 1
     Dates: start: 20200310, end: 20200310
  14. PEMBROLIZUMAB. [Suspect]
     Active Substance: PEMBROLIZUMAB
     Dosage: QUANTITY 2, DAYS 1
     Dates: start: 20200402, end: 20200402
  15. POLYBUTINE [Concomitant]
     Dosage: DOSE: 3, TIMES: 1
     Route: 048
     Dates: start: 20191015, end: 20191015
  16. DEXTROSE (+) SODIUM CHLORIDE [Concomitant]
     Dosage: DOSE:1, TIMES:1
     Dates: start: 20191015, end: 20191015
  17. MAXIPIME [Concomitant]
     Active Substance: CEFEPIME HYDROCHLORIDE
     Dosage: QUANTITY 6, DAYS 2
     Dates: start: 20191009, end: 20191012
  18. MORPHINE SULFATE. [Concomitant]
     Active Substance: MORPHINE SULFATE
     Dosage: QUANTITY 8, DAYS 1
     Dates: start: 20191010, end: 20191010
  19. PEMBROLIZUMAB. [Suspect]
     Active Substance: PEMBROLIZUMAB
     Dosage: QUANTITY 2, DAYS 1
     Dates: start: 20191111, end: 20191111
  20. PEMBROLIZUMAB. [Suspect]
     Active Substance: PEMBROLIZUMAB
     Dosage: QUANTITY 2, DAYS 1
     Dates: start: 20191202, end: 20191202
  21. SODIUM CHLORIDE. [Concomitant]
     Active Substance: SODIUM CHLORIDE
     Dosage: QUANTITY 6, DAYS 2
     Dates: start: 20191009, end: 20191012
  22. MAXIPIME [Concomitant]
     Active Substance: CEFEPIME HYDROCHLORIDE
     Dosage: DOSE: 4, TIMES:1
     Dates: start: 20191015, end: 20191015
  23. MORPHINE SULFATE. [Concomitant]
     Active Substance: MORPHINE SULFATE
     Dosage: QUANTITY 6, DAYS 6
     Dates: start: 20191001, end: 20191006
  24. MORPHINE SULFATE. [Concomitant]
     Active Substance: MORPHINE SULFATE
     Dosage: QUANTITY 7, DAYS 1
     Dates: start: 20191011, end: 20191011
  25. PERDIPINE [Concomitant]
     Active Substance: NICARDIPINE HYDROCHLORIDE
     Dosage: QUANTITY 1, DAYS 1
     Dates: start: 20191012, end: 20191012
  26. PEMBROLIZUMAB. [Suspect]
     Active Substance: PEMBROLIZUMAB
     Dosage: DOSE: 2, TIMES:1
     Dates: start: 20191015, end: 20191015
  27. PEMBROLIZUMAB. [Suspect]
     Active Substance: PEMBROLIZUMAB
     Dosage: UNK
     Dates: start: 20200516, end: 20200516
  28. PEMBROLIZUMAB. [Suspect]
     Active Substance: PEMBROLIZUMAB
     Dosage: QUANTITY 2, DAYS 1
     Dates: start: 20200718, end: 20200718
  29. COUGH SYRUP (AMMONIUM CHLORIDE (+) CHLORPHENIRAMINE MALEATE (+) DIHYDR [Concomitant]
     Dosage: DOSE: 3, TIMES:1
     Route: 048
     Dates: start: 20191015, end: 20191015
  30. CODEINE PHOSPHATE [Concomitant]
     Active Substance: CODEINE PHOSPHATE
     Dosage: DOSE: 6, TIMES: 1
     Route: 048
     Dates: start: 20191015, end: 20191015
  31. TRANSAMIN [Concomitant]
     Active Substance: TRANEXAMIC ACID
     Dosage: DOSE: 3, TIMES:1
     Route: 048
     Dates: start: 20191015, end: 20191015
  32. SODIUM CHLORIDE. [Concomitant]
     Active Substance: SODIUM CHLORIDE
     Dosage: QUANTITY 4, DAYS 1
     Dates: start: 20191008, end: 20191008
  33. DEXTROSE. [Concomitant]
     Active Substance: DEXTROSE
     Dosage: DOSE:1, TIME: 3
     Dates: start: 20191015, end: 20191017
  34. COMBIFLEX [Concomitant]
     Dosage: DOSE:1, TIMES: 3
     Dates: start: 20191015, end: 20191017
  35. SODIUM CHLORIDE. [Concomitant]
     Active Substance: SODIUM CHLORIDE
     Dosage: QUANTITY 1, DAYS 3
     Dates: start: 20191014, end: 20191025
  36. MORPHINE SULFATE. [Concomitant]
     Active Substance: MORPHINE SULFATE
     Dosage: QUANTITY 10, DAYS 2
     Dates: start: 20191012, end: 20191013
  37. SODIUM CHLORIDE. [Concomitant]
     Active Substance: SODIUM CHLORIDE
     Dosage: QUANTITY 1, DAYS 1
     Dates: start: 20191014, end: 20191014
  38. PEMBROLIZUMAB. [Suspect]
     Active Substance: PEMBROLIZUMAB
     Dosage: QUANTITY 2, DAYS 1
     Dates: start: 20200808, end: 20200808
  39. FULLGRAM INJECTION [Concomitant]
     Active Substance: CLINDAMYCIN
     Dosage: QUANTITY 2, DAYS 3
     Dates: start: 20191007, end: 20191025
  40. BROPIUM [Concomitant]
     Dosage: QUANTITY 1, DAYS 1
     Dates: start: 20191011, end: 20191011
  41. PEMBROLIZUMAB. [Suspect]
     Active Substance: PEMBROLIZUMAB
     Dosage: QUANTITY 2, DAYS 1
     Dates: start: 20191223, end: 20191223
  42. SODIUM CHLORIDE. [Concomitant]
     Active Substance: SODIUM CHLORIDE
     Dosage: DOSE: 4, TIMES:1
     Dates: start: 20191015, end: 20191015
  43. HEPARIN SODIUM. [Concomitant]
     Active Substance: HEPARIN SODIUM
     Dosage: DOSE:1, TIMES:1
     Dates: start: 20191015, end: 20191015
  44. FULLGRAM INJECTION [Concomitant]
     Active Substance: CLINDAMYCIN
     Dosage: QUANTITY 10, DAYS 1
     Dates: start: 20191009, end: 20191009
  45. ULTRAVIST [Concomitant]
     Active Substance: IOPROMIDE
     Dosage: QUANTITY 1, DAYS 1
     Dates: start: 20191010, end: 20191010
  46. MEPERIDINE HYDROCHLORIDE. [Concomitant]
     Active Substance: MEPERIDINE HYDROCHLORIDE
     Dosage: QUANTITY 1, DAYS 1
     Dates: start: 20191010, end: 20191010
  47. PEMBROLIZUMAB. [Suspect]
     Active Substance: PEMBROLIZUMAB
     Dosage: QUANTITY 2, DAYS 1
     Dates: start: 20200117, end: 20200117
  48. MAXIPIME [Concomitant]
     Active Substance: CEFEPIME HYDROCHLORIDE
     Dosage: QUANTITY 2, DAYS 4
     Dates: start: 20190930, end: 20191025
  49. SODIUM CHLORIDE. [Concomitant]
     Active Substance: SODIUM CHLORIDE
     Dosage: DOSE:1, TIMES: 1
     Dates: start: 20191015, end: 20191015
  50. MORPHINE HYDROCHLORIDE [Concomitant]
     Active Substance: MORPHINE HYDROCHLORIDE
     Dosage: QUANTITY 3, DAYS 1
     Dates: start: 20191008, end: 20191008
  51. HEPARIN SODIUM. [Concomitant]
     Active Substance: HEPARIN SODIUM
     Dosage: QUANTITY 1, DAYS 1
     Dates: start: 20191015, end: 20191015

REACTIONS (14)
  - Colon cancer [Unknown]
  - Adverse event [Unknown]
  - Drain placement [Unknown]
  - Drain placement [Unknown]
  - Oxygen therapy [Unknown]
  - Oxygen therapy [Unknown]
  - Bladder catheterisation [Unknown]
  - Gastrointestinal tube insertion [Unknown]
  - Central venous catheterisation [Unknown]
  - Nephrectomy [Unknown]
  - Adverse event [Unknown]
  - Inappropriate schedule of product administration [Unknown]
  - Adverse event [Unknown]
  - General anaesthesia [Unknown]

NARRATIVE: CASE EVENT DATE: 2019
